FAERS Safety Report 19582970 (Version 1)
Quarter: 2021Q3

REPORT INFORMATION
  Report Type: Spontaneous
  Country: US (occurrence: US)
  Receive Date: 20210720
  Receipt Date: 20210720
  Transmission Date: 20211014
  Serious: Yes (Hospitalization)
  Sender: FDA-Public Use
  Company Number: None

PATIENT
  Sex: Female

DRUGS (19)
  1. AZELASTINE. [Concomitant]
     Active Substance: AZELASTINE HYDROCHLORIDE
  2. HALOPERIDOL. [Concomitant]
     Active Substance: HALOPERIDOL
  3. LANTUS [Concomitant]
     Active Substance: INSULIN GLARGINE
  4. LIPITOR [Concomitant]
     Active Substance: ATORVASTATIN CALCIUM
  5. PROCHLORPER [Concomitant]
  6. SILDENAFIL 20 MG TAB [Suspect]
     Active Substance: SILDENAFIL
     Indication: PULMONARY HYPERTENSION
     Route: 048
     Dates: start: 20200616
  7. IRON [Concomitant]
     Active Substance: IRON
  8. PRILOSEC [Concomitant]
     Active Substance: OMEPRAZOLE MAGNESIUM
  9. CALCIUM [Concomitant]
     Active Substance: CALCIUM
  10. CETAPHIL [Concomitant]
  11. SYMBICORT [Concomitant]
     Active Substance: BUDESONIDE\FORMOTEROL FUMARATE DIHYDRATE
  12. ASPIRIN. [Concomitant]
     Active Substance: ASPIRIN
  13. BISACODYL. [Concomitant]
     Active Substance: BISACODYL
  14. HYOSCAMINE [Concomitant]
  15. QUETIAPINE. [Concomitant]
     Active Substance: QUETIAPINE
  16. COREG [Concomitant]
     Active Substance: CARVEDILOL
  17. LOSARTAN POT [Concomitant]
     Active Substance: LOSARTAN POTASSIUM
  18. TRAZODONE [Concomitant]
     Active Substance: TRAZODONE HYDROCHLORIDE
  19. HYDROMORPHON [Concomitant]
     Active Substance: HYDROMORPHONE

REACTIONS (1)
  - Peripheral swelling [None]
